FAERS Safety Report 9509410 (Version 1)
Quarter: 2013Q3

REPORT INFORMATION
  Report Type: Spontaneous
  Country: US (occurrence: US)
  Receive Date: 20130909
  Receipt Date: 20130909
  Transmission Date: 20140515
  Serious: No
  Sender: FDA-Public Use
  Company Number: US-BRISTOL-MYERS SQUIBB COMPANY-17301540

PATIENT
  Age: 53 Year
  Sex: Female

DRUGS (2)
  1. ABILIFY [Suspect]
     Indication: BIPOLAR DISORDER
     Dosage: STOPPED DATE AUGUST 2011
     Dates: end: 201108
  2. PROZAC [Concomitant]

REACTIONS (2)
  - Extrapyramidal disorder [Unknown]
  - Tardive dyskinesia [Unknown]
